FAERS Safety Report 9051112 (Version 1)
Quarter: 2013Q1

REPORT INFORMATION
  Report Type: Spontaneous
  Country: US (occurrence: US)
  Receive Date: 20130206
  Receipt Date: 20130206
  Transmission Date: 20140127
  Serious: No
  Sender: FDA-Public Use
  Company Number: US-PFIZER INC-2013047658

PATIENT
  Age: 43 Year
  Sex: Male
  Weight: 92.97 kg

DRUGS (3)
  1. LIPITOR [Suspect]
     Indication: BLOOD CHOLESTEROL INCREASED
     Dosage: 40 MG, UNK
     Route: 048
  2. CELEBREX [Suspect]
     Dosage: UNK
     Route: 048
  3. EFFEXOR XR [Suspect]
     Dosage: 75 MG, UNK
     Route: 048

REACTIONS (1)
  - Gastrooesophageal reflux disease [Unknown]
